FAERS Safety Report 12246771 (Version 1)
Quarter: 2016Q2

REPORT INFORMATION
  Report Type: Spontaneous
  Country: US (occurrence: US)
  Receive Date: 20160407
  Receipt Date: 20160407
  Transmission Date: 20160815
  Serious: No
  Sender: FDA-Public Use
  Company Number: US-BAYER-2016-060281

PATIENT
  Age: 65 Year
  Sex: Female
  Weight: 72.11 kg

DRUGS (2)
  1. MIRALAX [Suspect]
     Active Substance: POLYETHYLENE GLYCOL 3350
     Indication: COLONOSCOPY
     Dosage: UNK
     Route: 048
     Dates: start: 2012, end: 2012
  2. CLARITIN [Suspect]
     Active Substance: LORATADINE
     Dosage: UNK

REACTIONS (7)
  - Somnolence [None]
  - Diarrhoea [None]
  - Asthenia [None]
  - Anal incontinence [Recovered/Resolved]
  - Product use issue [None]
  - Product use issue [None]
  - Dehydration [None]

NARRATIVE: CASE EVENT DATE: 2012
